FAERS Safety Report 22530000 (Version 1)
Quarter: 2023Q2

REPORT INFORMATION
  Report Type: Spontaneous
  Country: US (occurrence: None)
  Receive Date: 20230605
  Receipt Date: 20230605
  Transmission Date: 20230722
  Serious: Yes (Other)
  Sender: FDA-Public Use
  Company Number: None

PATIENT
  Age: 59 Year

DRUGS (1)
  1. WIXELA INHUB [Suspect]
     Active Substance: FLUTICASONE PROPIONATE\SALMETEROL XINAFOATE
     Indication: Asthma
     Dosage: OTHER QUANTITY : 1 PUFF INTO LUNGS;?FREQUENCY : EVERY 12 HOURS;?
     Route: 055
     Dates: start: 20200914, end: 20220501

REACTIONS (6)
  - Vomiting [None]
  - Asthenia [None]
  - Arthralgia [None]
  - Swelling [None]
  - Headache [None]
  - Oxygen saturation decreased [None]

NARRATIVE: CASE EVENT DATE: 20230501
